FAERS Safety Report 9606999 (Version 1)
Quarter: 2013Q4

REPORT INFORMATION
  Report Type: Spontaneous
  Country: JP (occurrence: JP)
  Receive Date: 20131009
  Receipt Date: 20131009
  Transmission Date: 20140711
  Serious: Yes (Life-Threatening, Other)
  Sender: FDA-Public Use
  Company Number: JP-SUCAMPO PHARMA AMERICAS, INC-SPI201300681

PATIENT
  Age: 78 Year
  Sex: Male

DRUGS (3)
  1. AMITIZA [Suspect]
     Indication: CONSTIPATION
     Dosage: 24 MCG, BID
     Route: 048
     Dates: start: 20130726, end: 20130807
  2. SENNOSIDE [Concomitant]
     Indication: CONSTIPATION
     Dosage: 12 MG, BID
     Route: 048
     Dates: start: 20130726, end: 20130807
  3. GASTER D [Concomitant]
     Indication: GASTRITIS
     Dosage: 20 MG, BID
     Route: 048
     Dates: start: 20130726, end: 20130807

REACTIONS (4)
  - Acute myocardial infarction [Recovered/Resolved with Sequelae]
  - Acute coronary syndrome [Recovered/Resolved with Sequelae]
  - Chest pain [Recovered/Resolved with Sequelae]
  - Chest discomfort [None]
